FAERS Safety Report 21966007 (Version 1)
Quarter: 2023Q1

REPORT INFORMATION
  Report Type: Report from Study
  Country: DE (occurrence: DE)
  Receive Date: 20230208
  Receipt Date: 20230208
  Transmission Date: 20230418
  Serious: Yes (Other)
  Sender: FDA-Public Use
  Company Number: DE-ABBVIE-4299303

PATIENT
  Age: 48 Year
  Sex: Male

DRUGS (2)
  1. RINVOQ [Suspect]
     Active Substance: UPADACITINIB
     Indication: Dermatitis atopic
     Route: 048
     Dates: start: 20220331, end: 20230111
  2. LEVOTHYROXINE SODIUM [Concomitant]
     Active Substance: LEVOTHYROXINE SODIUM
     Indication: Hypothyroidism
     Route: 048
     Dates: start: 2012

REACTIONS (4)
  - Liver function test increased [Recovering/Resolving]
  - Herpes zoster [Recovered/Resolved]
  - Herpes simplex [Recovered/Resolved]
  - Ophthalmic herpes simplex [Recovered/Resolved]

NARRATIVE: CASE EVENT DATE: 20220414
